FAERS Safety Report 7685150-9 (Version None)
Quarter: 2011Q3

REPORT INFORMATION
  Report Type: 
  Country: None (occurrence: None)
  Receive Date: 20110816
  Receipt Date: 20110810
  Transmission Date: 20111222
  Serious: Yes (Death, Hospitalization)
  Sender: FDA-Public Use
  Company Number: JP-ASTELLAS-2011JP005235

PATIENT
  Sex: Male

DRUGS (40)
  1. ASPIRIN [Concomitant]
     Dosage: 100 MG, BID
     Route: 048
     Dates: start: 20101126, end: 20101224
  2. GENTACIN [Concomitant]
     Dosage: 20 G, UID/QD
     Route: 061
     Dates: start: 20101126, end: 20101126
  3. VOLTAREN [Concomitant]
     Dosage: 25 MG, PRN
     Route: 054
     Dates: start: 20110115, end: 20110115
  4. NOVOLIN R [Concomitant]
     Dosage: 14 IU, UNKNOWN/D
     Route: 065
     Dates: start: 20110202, end: 20110204
  5. RHEUMATREX [Concomitant]
     Dosage: 4 MG, UID/QD
     Route: 048
     Dates: start: 20101224, end: 20101226
  6. GLUFAST [Concomitant]
     Dosage: 10 MG, TID
     Route: 048
     Dates: start: 20101126, end: 20101224
  7. BASEN [Concomitant]
     Dosage: 0.2 MG, TID
     Route: 048
     Dates: start: 20101126, end: 20101224
  8. PURSENNID [Concomitant]
     Dosage: 12 MG, UID/QD
     Route: 048
     Dates: start: 20101126, end: 20110126
  9. LANSOPRAZOLE [Concomitant]
     Dosage: 15 MG, UID/QD
     Route: 048
     Dates: start: 20101126, end: 20101224
  10. GU2 [Concomitant]
     Dosage: 1 DF, TID
     Route: 065
     Dates: start: 20101228, end: 20110120
  11. GANCICLOVIR [Concomitant]
     Indication: CYTOMEGALOVIRUS INFECTION
     Dosage: 200 MG, UNKNOWN/D
     Route: 041
     Dates: start: 20110118, end: 20110204
  12. DISTILLED WATER [Concomitant]
     Dosage: 10 ML, UNKNOWN/D
     Route: 041
     Dates: start: 20110118, end: 20110204
  13. PROGRAF [Suspect]
     Dosage: 2 MG, UID/QD
     Route: 048
     Dates: start: 20101126, end: 20101224
  14. CLARITHROMYCIN [Concomitant]
     Dosage: 200 MG, BID
     Route: 048
     Dates: start: 20101126, end: 20110126
  15. LANSOPRAZOLE [Concomitant]
     Dosage: 30 MG, UID/QD
     Route: 048
     Dates: start: 20101228, end: 20110120
  16. VOLTAREN [Concomitant]
     Dosage: 25 MG, PRN
     Route: 054
     Dates: start: 20110125, end: 20110125
  17. NOVOLIN R [Concomitant]
     Dosage: 14 IU, UNKNOWN/D
     Route: 065
     Dates: start: 20110120, end: 20110131
  18. SODIUM CHLORIDE [Concomitant]
     Dosage: 1 DF, UNKNOWN/D
     Route: 041
     Dates: start: 20110124, end: 20110129
  19. AMINO ACIDS/CARBOHYDRATES/MINERALS/VITAMINS, [Concomitant]
     Dosage: 1 L, UNKNOWN/D
     Route: 041
     Dates: start: 20110120, end: 20110204
  20. DILTIAZEM HCL [Concomitant]
     Dosage: 100 MG, UID/QD
     Route: 048
     Dates: start: 20101126, end: 20110126
  21. MUCOSTA [Concomitant]
     Dosage: 100 MG, TID
     Route: 048
     Dates: start: 20110121, end: 20110126
  22. PROGRAF [Suspect]
     Dosage: 3 MG, UID/QD
     Route: 048
     Dates: start: 20101224, end: 20110120
  23. TELEMINSOFT [Concomitant]
     Dosage: 10 MG, UID/QD
     Route: 054
     Dates: start: 20110101, end: 20110101
  24. AMINO ACIDS/CARBOHYDRATES/MINERALS/VITAMINS, [Concomitant]
     Dosage: 1 L, UNKNOWN/D
     Route: 041
     Dates: start: 20110118, end: 20110119
  25. PROGRAF [Suspect]
     Dosage: 2 MG, UID/QD
     Route: 048
     Dates: start: 20110121, end: 20110126
  26. RHEUMATREX [Concomitant]
     Dosage: 4 MG, UID/QD
     Route: 048
     Dates: start: 20110107, end: 20110108
  27. ULCERLMIN [Concomitant]
     Dosage: 10 ML, TID
     Route: 048
     Dates: start: 20110121, end: 20110126
  28. SODIUM CHLORIDE [Concomitant]
     Dosage: 100 ML, UNKNOWN/D
     Route: 041
     Dates: start: 20110118, end: 20110204
  29. SOLDEM 1 [Concomitant]
     Dosage: 500 ML, UNKNOWN/D
     Route: 041
     Dates: start: 20110117, end: 20110117
  30. SOLDEM 1 [Concomitant]
     Dosage: 500 ML, UNKNOWN/D
     Route: 041
     Dates: start: 20110119, end: 20110119
  31. GLUCOSE [Concomitant]
     Dosage: 20 ML, UNKNOWN/D
     Route: 042
     Dates: start: 20110118, end: 20110118
  32. PROGRAF [Suspect]
     Indication: RHEUMATOID ARTHRITIS
     Dosage: 1 MG, UID/QD
     Route: 048
     Dates: start: 20110127, end: 20110202
  33. RHEUMATREX [Concomitant]
     Indication: RHEUMATOID ARTHRITIS
     Dosage: 3 MG, BID
     Route: 048
     Dates: start: 20101126, end: 20101130
  34. TANATRIL [Concomitant]
     Dosage: 5 MG, UID/QD
     Route: 048
     Dates: start: 20101126, end: 20110126
  35. SODIUM CHLORIDE [Concomitant]
     Dosage: 2 DF, UNKNOWN/D
     Route: 041
     Dates: start: 20110130, end: 20110207
  36. PROTEAMIN 12X [Concomitant]
     Dosage: 200 ML, UNKNOWN/D
     Route: 041
     Dates: start: 20110130, end: 20110202
  37. ALLOID G [Concomitant]
     Dosage: 20 ML, TID
     Route: 048
     Dates: start: 20101221, end: 20101231
  38. NIFLEC [Concomitant]
     Dosage: 1 DF, UID/QD
     Route: 048
     Dates: start: 20110119, end: 20110119
  39. NOVOLIN R [Concomitant]
     Dosage: 10 IU, UNKNOWN/D
     Route: 065
     Dates: start: 20110118, end: 20110119
  40. NOVOLIN R [Concomitant]
     Dosage: 20 IU, UNKNOWN/D
     Route: 065
     Dates: start: 20110207, end: 20110207

REACTIONS (3)
  - CYTOMEGALOVIRUS INFECTION [None]
  - PNEUMONIA BACTERIAL [None]
  - GASTRIC ULCER [None]
